FAERS Safety Report 6700182-2 (Version None)
Quarter: 2010Q2

REPORT INFORMATION
  Report Type: 
  Country: None (occurrence: None)
  Receive Date: 20100428
  Receipt Date: 20100415
  Transmission Date: 20101027
  Serious: Yes (Hospitalization)
  Sender: FDA-Public Use
  Company Number: JP-GENENTECH-298036

PATIENT
  Sex: Male
  Weight: 72 kg

DRUGS (19)
  1. OMALIZUMAB [Suspect]
     Indication: ASTHMA
     Dosage: 150 MG, 1/MONTH
     Dates: start: 20090709
  2. OMALIZUMAB [Suspect]
     Dosage: 150 MG, 1/MONTH
     Dates: start: 20090730
  3. OMALIZUMAB [Suspect]
     Dosage: 150 MG, 1/MONTH
     Dates: start: 20090903
  4. OMALIZUMAB [Suspect]
     Dosage: 150 MG, 1/MONTH
     Dates: start: 20091001
  5. OMALIZUMAB [Suspect]
     Dosage: 150 MG, 1/MONTH
     Dates: start: 20091029
  6. OMALIZUMAB [Suspect]
     Dosage: 150 MG, 1/MONTH
     Dates: start: 20091203, end: 20091203
  7. QVAR 40 [Concomitant]
     Indication: DRUG USE FOR UNKNOWN INDICATION
     Dosage: UNK
     Dates: end: 20090129
  8. SEREVENT [Concomitant]
     Indication: DRUG USE FOR UNKNOWN INDICATION
     Dosage: UNK
     Dates: start: 20090129
  9. SPIRIVA [Concomitant]
     Indication: DRUG USE FOR UNKNOWN INDICATION
     Dosage: UNK
     Dates: start: 20090129
  10. PREDONINE [Concomitant]
     Indication: DRUG USE FOR UNKNOWN INDICATION
     Dosage: UNK
     Dates: start: 20090423
  11. PREDONINE [Concomitant]
     Dosage: UNK
     Dates: end: 20090416
  12. FAMOTIDINE [Concomitant]
     Indication: DRUG USE FOR UNKNOWN INDICATION
     Dosage: UNK
     Dates: start: 20070926
  13. MEVALOTIN [Concomitant]
     Indication: DRUG USE FOR UNKNOWN INDICATION
     Dosage: UNK
     Dates: start: 20070926
  14. METFORMIN HYDROCHLORIDE [Concomitant]
     Indication: DRUG USE FOR UNKNOWN INDICATION
     Dosage: UNK
     Dates: start: 20070926
  15. NATEGLINIDE [Concomitant]
     Indication: DRUG USE FOR UNKNOWN INDICATION
     Dosage: UNK
     Dates: start: 20070926
  16. MEIACT [Concomitant]
     Indication: DRUG USE FOR UNKNOWN INDICATION
     Dosage: UNK
     Dates: start: 20091126, end: 20091128
  17. SOLANTAL [Concomitant]
     Indication: DRUG USE FOR UNKNOWN INDICATION
     Dosage: UNK
     Dates: start: 20091126, end: 20100117
  18. HERBAL DRUG NOS [Concomitant]
     Indication: DRUG USE FOR UNKNOWN INDICATION
     Dosage: UNK
     Dates: start: 20091203, end: 20091217
  19. RINDERON [Concomitant]
     Indication: DRUG USE FOR UNKNOWN INDICATION
     Dosage: UNK
     Dates: start: 20090717, end: 20090717

REACTIONS (5)
  - CYTOMEGALOVIRUS INFECTION [None]
  - DRUG RASH WITH EOSINOPHILIA AND SYSTEMIC SYMPTOMS [None]
  - EOSINOPHILIA [None]
  - PRURITUS [None]
  - WHITE BLOOD CELL COUNT INCREASED [None]
